FAERS Safety Report 4764287-8 (Version None)
Quarter: 2005Q3

REPORT INFORMATION
  Report Type: 
  Country: None (occurrence: None)
  Receive Date: 20050909
  Receipt Date: 20050725
  Transmission Date: 20060218
  Serious: Yes (Hospitalization)
  Sender: FDA-Public Use
  Company Number: US-BOEHRINGER INGELHEIM PHARMACEUTICALS, INC.-2005-BP-12626BP

PATIENT
  Sex: Male
  Weight: 73.79 kg

DRUGS (5)
  1. TIPRANAVIR / RITONAVIR CAPSULES [Suspect]
     Indication: HIV INFECTION
     Dosage: TPV/R 1000/400 MG
     Route: 048
     Dates: start: 20030709
  2. ZIDOVUDINE [Suspect]
     Indication: HIV INFECTION
     Route: 048
     Dates: start: 20010726, end: 20050719
  3. LAMIVUDINE [Suspect]
     Indication: HIV INFECTION
     Route: 048
     Dates: start: 20010726
  4. FUZEON [Suspect]
     Indication: HIV INFECTION
     Route: 058
     Dates: start: 20030709
  5. VIREAD [Suspect]
     Indication: HIV INFECTION
     Route: 048
     Dates: start: 20030709

REACTIONS (2)
  - APPENDICITIS [None]
  - DEHYDRATION [None]
